FAERS Safety Report 20721145 (Version 1)
Quarter: 2022Q2

REPORT INFORMATION
  Report Type: Spontaneous
  Country: US (occurrence: None)
  Receive Date: 20220418
  Receipt Date: 20220418
  Transmission Date: 20220721
  Serious: Yes (Death)
  Sender: FDA-Public Use
  Company Number: None

PATIENT
  Age: 68 Year
  Sex: Male
  Weight: 85 kg

DRUGS (3)
  1. GENETICALLY-MODIFIED AUTOLOGOUS T CELLS NOS [Suspect]
     Active Substance: GENETICALLY-MODIFIED AUTOLOGOUS T CELLS NOS
     Indication: Diffuse large B-cell lymphoma
     Dosage: DOSE: 1.57 X 108 CELLS?FREQUENCY: SINGLE
     Route: 042
     Dates: start: 20210407, end: 20210407
  2. CYCLOPHOSPHAMIDE [Concomitant]
  3. FLUDARABINE [Concomitant]

REACTIONS (4)
  - Cardiac arrest [None]
  - Pancytopenia [None]
  - Bone marrow failure [None]
  - Hospice care [None]

NARRATIVE: CASE EVENT DATE: 20220415
